FAERS Safety Report 6644774-8 (Version None)
Quarter: 2010Q1

REPORT INFORMATION
  Report Type: 
  Country: None (occurrence: None)
  Receive Date: 20100305
  Receipt Date: 20100220
  Transmission Date: 20100710
  Serious: No
  Sender: FDA-Public Use
  Company Number: 2010-00278

PATIENT
  Sex: Male
  Weight: 65.7716 kg

DRUGS (5)
  1. ZICAM ALLERGY RELIEF GEL SWABS [Suspect]
     Dosage: EVERY 4HRS - 1 DAY
     Dates: start: 20100218, end: 20100219
  2. NIACIN [Concomitant]
  3. CHONDROTIN [Concomitant]
  4. FISH OIL [Concomitant]
  5. VITAMIN D [Concomitant]

REACTIONS (2)
  - AGEUSIA [None]
  - ANOSMIA [None]
